FAERS Safety Report 9892109 (Version 2)
Quarter: 2014Q1

REPORT INFORMATION
  Report Type: Spontaneous
  Country: JP (occurrence: JP)
  Receive Date: 20140212
  Receipt Date: 20140218
  Transmission Date: 20141002
  Serious: Yes (Other)
  Sender: FDA-Public Use
  Company Number: JP-PFIZER INC-2014033656

PATIENT
  Age: 52 Year
  Sex: Male

DRUGS (3)
  1. JZOLOFT [Suspect]
     Indication: MAJOR DEPRESSION
     Dosage: UNK
     Route: 048
  2. JZOLOFT [Suspect]
     Dosage: 100 MG, DAILY
     Route: 048
  3. JZOLOFT [Suspect]
     Dosage: 75 MG, DAILY
     Route: 048

REACTIONS (1)
  - Delirium [Recovered/Resolved]
